FAERS Safety Report 4723552-0 (Version None)
Quarter: 2005Q3

REPORT INFORMATION
  Report Type: 
  Country: None (occurrence: None)
  Receive Date: 20050720
  Receipt Date: 20050720
  Transmission Date: 20060218
  Serious: Yes (Hospitalization)
  Sender: FDA-Public Use
  Company Number: None

PATIENT
  Age: 81 Year
  Sex: Male
  Weight: 78.9259 kg

DRUGS (11)
  1. ATENOLOL [Suspect]
     Indication: HYPERTENSION
     Dosage: 25 MG QD (PO)
     Route: 048
     Dates: start: 20020401, end: 20050201
  2. ALBUTEROL [Concomitant]
  3. CHOLINE MAGNESIUM TRISALICYLATE [Concomitant]
  4. DIGOXIN [Concomitant]
  5. DOCUSATE [Concomitant]
  6. DONEPEZIL HCL [Concomitant]
  7. FINSTERIDE [Concomitant]
  8. FLUNOSOLIDE [Concomitant]
  9. METFORMIN [Concomitant]
  10. SIMVASTATIN [Concomitant]
  11. TAMSULOSIN [Concomitant]

REACTIONS (4)
  - FALL [None]
  - LOSS OF CONSCIOUSNESS [None]
  - SKIN LACERATION [None]
  - SYNCOPE VASOVAGAL [None]
